FAERS Safety Report 6786401-5 (Version None)
Quarter: 2010Q2

REPORT INFORMATION
  Report Type: 
  Country: None (occurrence: None)
  Receive Date: 20100623
  Receipt Date: 20100616
  Transmission Date: 20101027
  Serious: Yes (Hospitalization)
  Sender: FDA-Public Use
  Company Number: A0790720A

PATIENT
  Age: 73 Year
  Sex: Male
  Weight: 90.5 kg

DRUGS (5)
  1. AVANDIA [Suspect]
     Indication: DIABETES MELLITUS
     Route: 048
     Dates: start: 20000925, end: 20070401
  2. CARDIZEM [Concomitant]
  3. LISINOPRIL [Concomitant]
  4. GLUCOTROL XL [Concomitant]
  5. PROPECIA [Concomitant]

REACTIONS (3)
  - ATRIAL FIBRILLATION [None]
  - CARDIAC DISORDER [None]
  - CEREBROVASCULAR ACCIDENT [None]
